FAERS Safety Report 7929130-4 (Version None)
Quarter: 2011Q4

REPORT INFORMATION
  Report Type: 
  Country: None (occurrence: None)
  Receive Date: 20111119
  Receipt Date: 20111107
  Transmission Date: 20120403
  Serious: Yes (Hospitalization, Other)
  Sender: FDA-Public Use
  Company Number: US-ELI_LILLY_AND_COMPANY-US201111001779

PATIENT
  Sex: Female

DRUGS (11)
  1. PERCOCET [Concomitant]
  2. LISINOPRIL [Concomitant]
     Dosage: 20 MG, QD
  3. MORPHINE [Concomitant]
  4. VITAMIN D [Concomitant]
     Dosage: 1000 IU, UNK
  5. ANALGESICS [Concomitant]
     Indication: PAIN
  6. LIPITOR [Concomitant]
     Dosage: 20 MG, QD
  7. MULTI-VITAMIN [Concomitant]
  8. ASCORBIC ACID [Concomitant]
  9. FORTEO [Suspect]
     Indication: OSTEOPOROSIS
     Dosage: 20 UG, QD
     Dates: start: 20110919
  10. FORTEO [Suspect]
     Dosage: 20 UG, QD
     Dates: start: 20111105
  11. ZOLOFT [Concomitant]
     Dosage: 10 MG, QD

REACTIONS (2)
  - HIP FRACTURE [None]
  - FALL [None]
